FAERS Safety Report 19931180 (Version 1)
Quarter: 2021Q4

REPORT INFORMATION
  Report Type: Spontaneous
  Country: US (occurrence: US)
  Receive Date: 20211007
  Receipt Date: 20211007
  Transmission Date: 20220303
  Serious: Yes (Hospitalization)
  Sender: FDA-Public Use
  Company Number: US-PFIZER INC-202101276667

PATIENT
  Age: 20 Year
  Sex: Female

DRUGS (4)
  1. SERTRALINE HYDROCHLORIDE [Suspect]
     Active Substance: SERTRALINE HYDROCHLORIDE
     Indication: Anxiety
     Dosage: 25 MG, 1X/DAY
  2. SERTRALINE HYDROCHLORIDE [Suspect]
     Active Substance: SERTRALINE HYDROCHLORIDE
     Indication: Depression
  3. NORETHINDRONE ACETATE AND ETHINYL ESTRADIOL [Concomitant]
     Active Substance: ETHINYL ESTRADIOL\NORETHINDRONE ACETATE
     Indication: Contraception
     Dosage: 20 UG, DAILY
  4. METRONIDAZOLE [Concomitant]
     Active Substance: METRONIDAZOLE
     Indication: Bacterial vaginosis
     Dosage: UNK (7-DAY COURSE)

REACTIONS (1)
  - Postural orthostatic tachycardia syndrome [Recovered/Resolved]
